FAERS Safety Report 4395952-2 (Version None)
Quarter: 2004Q2

REPORT INFORMATION
  Report Type: 
  Country: None (occurrence: None)
  Receive Date: 20040621
  Receipt Date: 20031119
  Transmission Date: 20050107
  Serious: Yes (Death, Other)
  Sender: FDA-Public Use
  Company Number: USA-2003-0010893

PATIENT
  Age: 42 Year
  Sex: Female
  Weight: 83.4 kg

DRUGS (5)
  1. OXYCODONE HCL [Suspect]
  2. PAROXETINE HCL [Suspect]
  3. GABAPENTIN [Suspect]
  4. CARISOPRODOL [Suspect]
  5. MEPROBAMATE [Suspect]

REACTIONS (5)
  - ACCIDENTAL OVERDOSE [None]
  - DRUG ABUSER [None]
  - MULTIPLE DRUG OVERDOSE [None]
  - MULTIPLE DRUG OVERDOSE ACCIDENTAL [None]
  - OVERDOSE [None]
